FAERS Safety Report 22050716 (Version 1)
Quarter: 2023Q1

REPORT INFORMATION
  Report Type: Spontaneous
  Country: US (occurrence: None)
  Receive Date: 20230228
  Receipt Date: 20230228
  Transmission Date: 20230417
  Serious: Yes (Death, Hospitalization)
  Sender: FDA-Public Use
  Company Number: None

PATIENT
  Age: 58 Year
  Sex: Male

DRUGS (1)
  1. ZIEXTENZO [Suspect]
     Active Substance: PEGFILGRASTIM-BMEZ
     Dosage: OTHER QUANTITY : 6MG/0.6ML;?
     Route: 058
     Dates: start: 202201, end: 202302

REACTIONS (1)
  - Death [None]

NARRATIVE: CASE EVENT DATE: 20230214
